FAERS Safety Report 9350316 (Version 1)
Quarter: 2013Q2

REPORT INFORMATION
  Report Type: Spontaneous
  Country: US (occurrence: None)
  Receive Date: 20130613
  Receipt Date: 20130613
  Transmission Date: 20140414
  Serious: Yes (Other)
  Sender: FDA-Public Use
  Company Number: None

PATIENT
  Age: 13 Year
  Sex: Female
  Weight: 46.72 kg

DRUGS (1)
  1. EXJADE [Suspect]
     Indication: TRANSFUSION
     Route: 048
     Dates: start: 20130507, end: 20130520

REACTIONS (5)
  - Paraesthesia [None]
  - Hypoaesthesia [None]
  - Visual field defect [None]
  - Headache [None]
  - Nausea [None]
